FAERS Safety Report 8108107-2 (Version None)
Quarter: 2011Q4

REPORT INFORMATION
  Report Type: 
  Country: None (occurrence: None)
  Receive Date: 20111227
  Receipt Date: 20111115
  Transmission Date: 20120403
  Serious: Yes (Other)
  Sender: FDA-Public Use
  Company Number: PHHY2011US60513

PATIENT
  Age: 56 Year
  Sex: Female

DRUGS (11)
  1. NEXIUM [Concomitant]
  2. ASA (ACETYLSALICYLCI ACID) [Concomitant]
  3. NEURONTIN [Concomitant]
  4. PROVIGIL [Concomitant]
  5. ZOCOR [Concomitant]
  6. CALCIUM D (CALCIUM, COLECALCIFEROL) [Concomitant]
  7. CYMBALTA [Concomitant]
  8. CALTRATE (CALCIUM CARBONATE) [Concomitant]
  9. ANTIHYPERTENSIVE DRUGS (NO INGREDIENTS/SUBSTANCES) [Concomitant]
  10. GILENYA [Suspect]
     Dosage: 0.5 MG, QD, ORAL
     Route: 048
  11. BACLOFEN [Concomitant]

REACTIONS (4)
  - MUSCLE SPASMS [None]
  - NEURALGIA [None]
  - HERPES ZOSTER [None]
  - HEADACHE [None]
